FAERS Safety Report 19252697 (Version 1)
Quarter: 2021Q2

REPORT INFORMATION
  Report Type: Spontaneous
  Country: ES (occurrence: ES)
  Receive Date: 20210512
  Receipt Date: 20210512
  Transmission Date: 20210717
  Serious: Yes (Hospitalization, Other)
  Sender: FDA-Public Use
  Company Number: ES-AUROBINDO-AUR-APL-2021-019106

PATIENT
  Age: 73 Year
  Sex: Female

DRUGS (3)
  1. MEROPENEM. [Suspect]
     Active Substance: MEROPENEM
     Indication: INFECTION
     Dosage: 3 GRAM, ONCE A DAY
     Route: 042
     Dates: start: 20200306, end: 20200309
  2. METRONIDAZOL [Concomitant]
     Active Substance: METRONIDAZOLE
     Indication: SKIN BACTERIAL INFECTION
     Dosage: 1500 MILLIGRAM, ONCE A DAY
     Route: 042
     Dates: start: 20200307
  3. DAPTOMYCINE [Concomitant]
     Active Substance: DAPTOMYCIN
     Indication: INFECTION
     Dosage: 600 MILLIGRAM 1 TOTAL
     Route: 042
     Dates: start: 20200307, end: 20200307

REACTIONS (1)
  - Status epilepticus [Recovered/Resolved]

NARRATIVE: CASE EVENT DATE: 20200309
